FAERS Safety Report 21435852 (Version 1)
Quarter: 2022Q4

REPORT INFORMATION
  Report Type: Spontaneous
  Country: US (occurrence: US)
  Receive Date: 20221010
  Receipt Date: 20221010
  Transmission Date: 20230113
  Serious: Yes (Hospitalization, Other)
  Sender: FDA-Public Use
  Company Number: US-JUBILANT CADISTA PHARMACEUTICALS-2022JUB00345

PATIENT
  Age: 49 Year
  Sex: Female

DRUGS (6)
  1. PREDNISONE [Suspect]
     Active Substance: PREDNISONE
     Indication: Still^s disease
     Dosage: INCREASED TO 40 MG DAILY
  2. PREDNISONE [Suspect]
     Active Substance: PREDNISONE
     Dosage: INCREASED TO 40 MG DAILY
  3. PREDNISONE [Suspect]
     Active Substance: PREDNISONE
     Dosage: 2.5 MG
  4. PREDNISONE [Suspect]
     Active Substance: PREDNISONE
     Dosage: 20 MG
  5. PREDNISONE [Suspect]
     Active Substance: PREDNISONE
     Dosage: 10 MG
  6. PREDNISONE [Suspect]
     Active Substance: PREDNISONE
     Dosage: 5 MG

REACTIONS (3)
  - Meningitis cryptococcal [Recovering/Resolving]
  - Immune reconstitution inflammatory syndrome [Recovering/Resolving]
  - Encephalitis [Recovering/Resolving]
